FAERS Safety Report 9783461 (Version 2)
Quarter: 2013Q4

REPORT INFORMATION
  Report Type: Spontaneous
  Country: US (occurrence: US)
  Receive Date: 20131226
  Receipt Date: 20131226
  Transmission Date: 20140711
  Serious: Yes (Other)
  Sender: FDA-Public Use
  Company Number: US-BAYER-2013-155179

PATIENT
  Age: 54 Year
  Sex: Female
  Weight: 117.91 kg

DRUGS (3)
  1. ALEVE LIQUID GELS [Suspect]
     Indication: PRODUCT USED FOR UNKNOWN INDICATION
     Dosage: UNK UNK, QD
     Route: 048
  2. ALEVE TABLET [Suspect]
     Dosage: UNK UNK, QD
     Route: 048
  3. LUNESTA [Concomitant]
     Indication: SLEEP APNOEA SYNDROME

REACTIONS (4)
  - Haematuria [Recovered/Resolved]
  - Chromaturia [Recovered/Resolved]
  - Abdominal pain [Recovered/Resolved]
  - Incorrect drug administration duration [None]
